FAERS Safety Report 7356152-7 (Version None)
Quarter: 2011Q1

REPORT INFORMATION
  Report Type: 
  Country: None (occurrence: None)
  Receive Date: 20110316
  Receipt Date: 20110310
  Transmission Date: 20110831
  Serious: Yes (Death)
  Sender: FDA-Public Use
  Company Number: FR-JNJFOC-20110306013

PATIENT
  Age: 77 Year
  Sex: Male

DRUGS (4)
  1. REOPRO [Suspect]
     Indication: ILL-DEFINED DISORDER
     Route: 042
  2. PLAVIX [Concomitant]
     Indication: ILL-DEFINED DISORDER
  3. ASPEGIC 325 [Concomitant]
     Indication: ILL-DEFINED DISORDER
  4. LOVENOX [Concomitant]
     Indication: ILL-DEFINED DISORDER
     Dosage: ^8000^

REACTIONS (1)
  - CEREBROVASCULAR ACCIDENT [None]
